FAERS Safety Report 4778038-4 (Version None)
Quarter: 2005Q3

REPORT INFORMATION
  Report Type: 
  Country: None (occurrence: None)
  Receive Date: 20050923
  Receipt Date: 20050923
  Transmission Date: 20060218
  Serious: Yes (Other)
  Sender: FDA-Public Use
  Company Number: None

PATIENT
  Age: 68 Year
  Sex: Male
  Weight: 110.7 kg

DRUGS (11)
  1. METFORMIN [Suspect]
  2. GLYBURIDE [Concomitant]
  3. HYDROCHLOROTHIAZIDE [Concomitant]
  4. METFORMIN HCL [Concomitant]
  5. ISOSORBIDE DINITRATE [Concomitant]
  6. ASPIRIN [Concomitant]
  7. ATENOLOL [Concomitant]
  8. FOSINOPRIL NA [Concomitant]
  9. LOVASTATIN [Concomitant]
  10. ACCU-CHEK COMFORT CURVE-H TEST STRIP [Concomitant]
  11. NITROGLYCERIN [Concomitant]

REACTIONS (1)
  - DIARRHOEA [None]
